FAERS Safety Report 9777735 (Version 1)
Quarter: 2013Q4

REPORT INFORMATION
  Report Type: Spontaneous
  Country: PH (occurrence: PH)
  Receive Date: 20131223
  Receipt Date: 20131223
  Transmission Date: 20140711
  Serious: Yes (Death)
  Sender: FDA-Public Use
  Company Number: PH-009507513-1312PHL009377

PATIENT
  Age: 72 Year
  Sex: Female

DRUGS (2)
  1. JANUVIA [Suspect]
     Dosage: ONE TABLET ONCE DAILY
     Route: 048
     Dates: start: 20131031
  2. XELEVIA [Suspect]
     Route: 048

REACTIONS (1)
  - Death [Fatal]
